FAERS Safety Report 6186000-2 (Version None)
Quarter: 2009Q2

REPORT INFORMATION
  Report Type: 
  Country: None (occurrence: None)
  Receive Date: 20090511
  Receipt Date: 20090427
  Transmission Date: 20091009
  Serious: Yes (Other)
  Sender: FDA-Public Use
  Company Number: US-JNJFOC-20090401003

PATIENT
  Sex: Female
  Weight: 74.62 kg

DRUGS (7)
  1. REMICADE [Suspect]
     Route: 042
     Dates: start: 20040601
  2. REMICADE [Suspect]
     Indication: PSORIATIC ARTHROPATHY
     Route: 042
     Dates: start: 20040601
  3. CELEBREX [Concomitant]
     Route: 048
  4. MULTI-VITAMINS [Concomitant]
     Route: 048
  5. CALCIUM [Concomitant]
     Route: 048
  6. FOLIC ACID [Concomitant]
     Route: 048
  7. FLUVOXAMINE MALEATE [Concomitant]
     Route: 048

REACTIONS (5)
  - ANXIETY [None]
  - DRUG EXPOSURE DURING PREGNANCY [None]
  - GESTATIONAL DIABETES [None]
  - OBSESSIVE-COMPULSIVE DISORDER [None]
  - PREGNANCY [None]
